FAERS Safety Report 17186046 (Version 1)
Quarter: 2019Q4

REPORT INFORMATION
  Report Type: Report from Study
  Country: FR (occurrence: FR)
  Receive Date: 20191220
  Receipt Date: 20191220
  Transmission Date: 20200122
  Serious: Yes (Other)
  Sender: FDA-Public Use
  Company Number: FR-US-PROVELL PHARMACEUTICALS LLC-9136106

PATIENT
  Sex: Female

DRUGS (1)
  1. LEVOTHYROX [Suspect]
     Active Substance: LEVOTHYROXINE
     Indication: THYROID DISORDER
     Dates: start: 2005

REACTIONS (8)
  - Abnormal behaviour [Unknown]
  - Headache [Unknown]
  - Mental impairment [Unknown]
  - Pain [Unknown]
  - Incoherent [Unknown]
  - Mental disorder [Unknown]
  - Depression [Unknown]
  - General physical health deterioration [Unknown]
